FAERS Safety Report 4757447-3 (Version None)
Quarter: 2005Q3

REPORT INFORMATION
  Report Type: 
  Country: None (occurrence: None)
  Receive Date: 20050831
  Receipt Date: 20050822
  Transmission Date: 20060218
  Serious: Yes (Other)
  Sender: FDA-Public Use
  Company Number: US-BRISTOL-MYERS SQUIBB COMPANY-13085006

PATIENT
  Age: 57 Year
  Sex: Female
  Weight: 84 kg

DRUGS (4)
  1. COUMADIN [Suspect]
     Indication: ATRIAL FIBRILLATION
     Dosage: CURRENTLY ON: 6MG 3 X'S WEEK + 5 MG, 4 X'S WEEK
     Route: 048
     Dates: start: 20050601
  2. ATENOLOL [Concomitant]
  3. DIGOXIN [Concomitant]
  4. AMBIEN [Concomitant]
     Dosage: HS

REACTIONS (8)
  - ABDOMINAL PAIN UPPER [None]
  - ANAEMIA [None]
  - ASTHENIA [None]
  - CARDIAC STRESS TEST ABNORMAL [None]
  - ELECTROCARDIOGRAM ABNORMAL [None]
  - HEADACHE [None]
  - INTERNATIONAL NORMALISED RATIO INCREASED [None]
  - MENORRHAGIA [None]
